FAERS Safety Report 5320890-8 (Version None)
Quarter: 2007Q2

REPORT INFORMATION
  Report Type: 
  Country: None (occurrence: None)
  Receive Date: 20070504
  Receipt Date: 20070424
  Transmission Date: 20071010
  Serious: Yes (Hospitalization)
  Sender: FDA-Public Use
  Company Number: GXKR2007GB03770

PATIENT
  Age: 58 Year
  Sex: Female

DRUGS (3)
  1. CODEINE PHOSPHATE AND ACETAMINOPHEN [Suspect]
     Indication: BACK PAIN
     Dosage: 1 DF, BID, ORAL
     Route: 048
     Dates: start: 20070127, end: 20070128
  2. LEVOTHYROXINE SODIUM [Concomitant]
  3. PARACETAMOL [Concomitant]

REACTIONS (3)
  - AGITATION [None]
  - DRY MOUTH [None]
  - THIRST [None]
